FAERS Safety Report 25697788 (Version 4)
Quarter: 2025Q3

REPORT INFORMATION
  Report Type: Report from Study
  Country: JP (occurrence: JP)
  Receive Date: 20250819
  Receipt Date: 20250912
  Transmission Date: 20251021
  Serious: Yes (Death, Hospitalization, Other)
  Sender: TAKEDA
  Company Number: JP-TAKEDA-2025TJP008264

PATIENT
  Age: 65 Year
  Sex: Female

DRUGS (1)
  1. FRUQUINTINIB [Suspect]
     Active Substance: FRUQUINTINIB
     Indication: Product used for unknown indication
     Dates: start: 20250703, end: 20250812

REACTIONS (2)
  - Colon cancer [Fatal]
  - Biliary tract infection [Not Recovered/Not Resolved]

NARRATIVE: CASE EVENT DATE: 20250813
